FAERS Safety Report 10635826 (Version 1)
Quarter: 2014Q4

REPORT INFORMATION
  Report Type: Spontaneous
  Country: US (occurrence: US)
  Receive Date: 20141205
  Receipt Date: 20141205
  Transmission Date: 20150529
  Serious: Yes (Death, Hospitalization, Other)
  Sender: FDA-Public Use
  Company Number: PHHY2014US155286

PATIENT
  Age: 74 Year
  Sex: Female

DRUGS (4)
  1. WARFARIN [Suspect]
     Active Substance: WARFARIN
     Indication: ATRIAL FIBRILLATION
     Route: 065
  2. BENZYLPENICILLIN [Suspect]
     Active Substance: PENICILLIN G
     Indication: PRODUCT USED FOR UNKNOWN INDICATION
     Dosage: 2.4 MILLION UNITS
     Route: 030
  3. ASPIRIN. [Concomitant]
     Active Substance: ASPIRIN
     Indication: ATRIAL FIBRILLATION
     Route: 065
  4. CLOPIDOGREL [Concomitant]
     Active Substance: CLOPIDOGREL BISULFATE
     Indication: ATRIAL FIBRILLATION
     Route: 065

REACTIONS (14)
  - Mitral valve calcification [Unknown]
  - Pain of skin [Recovering/Resolving]
  - Skin discolouration [Unknown]
  - Chordae tendinae rupture [Unknown]
  - Skin lesion [Recovering/Resolving]
  - Skin plaque [Unknown]
  - Mitral valve incompetence [Unknown]
  - Concomitant disease aggravated [Unknown]
  - Serum sickness-like reaction [Recovered/Resolved]
  - Cardiac failure [Fatal]
  - Calciphylaxis [Unknown]
  - Induration [Unknown]
  - Rash maculo-papular [Recovered/Resolved]
  - Dyspnoea exertional [Recovering/Resolving]
